FAERS Safety Report 7844596-6 (Version None)
Quarter: 2011Q4

REPORT INFORMATION
  Report Type: 
  Country: None (occurrence: None)
  Receive Date: 20111025
  Receipt Date: 20111007
  Transmission Date: 20120403
  Serious: Yes (Hospitalization)
  Sender: FDA-Public Use
  Company Number: HU-ROCHE-798410

PATIENT
  Age: 61 Year
  Sex: Male
  Weight: 87.2 kg

DRUGS (5)
  1. VEMURAFENIB [Interacting]
     Route: 048
  2. IBUPROFEN [Interacting]
     Indication: PRODUCT USED FOR UNKNOWN INDICATION
     Dosage: 1 TABLET IN CASE OF PAIN
     Route: 065
     Dates: start: 20110801, end: 20110818
  3. ACETAMINOPHEN [Interacting]
     Indication: PRODUCT USED FOR UNKNOWN INDICATION
     Dosage: 1 TABLET IN CASE OF PAIN.
     Route: 065
     Dates: start: 20110801, end: 20110818
  4. TRAMADOL HCL [Concomitant]
     Dosage: 1 TABLET IN CASE OF PAIN.
     Route: 065
     Dates: start: 20110801, end: 20110818
  5. VEMURAFENIB [Suspect]
     Indication: MALIGNANT MELANOMA
     Dosage: DOSAGE FORM: FILM COA.
     Route: 048
     Dates: start: 20110718, end: 20110819

REACTIONS (2)
  - DEHYDRATION [None]
  - DRUG INTERACTION [None]
